FAERS Safety Report 9338609 (Version 1)
Quarter: 2013Q2

REPORT INFORMATION
  Report Type: Spontaneous
  Country: TR (occurrence: TR)
  Receive Date: 20130610
  Receipt Date: 20130610
  Transmission Date: 20140414
  Serious: Yes (Life-Threatening)
  Sender: FDA-Public Use
  Company Number: PHHY2013TR057933

PATIENT
  Age: 57 Year
  Sex: Male
  Weight: 62 kg

DRUGS (1)
  1. CATAFLAM [Suspect]
     Indication: HEADACHE
     Dosage: 1 DF, ONE TIME
     Route: 048

REACTIONS (3)
  - Blindness [Unknown]
  - Respiratory distress [Unknown]
  - Generalised erythema [Unknown]
